FAERS Safety Report 5069673-7 (Version None)
Quarter: 2006Q3

REPORT INFORMATION
  Report Type: 
  Country: None (occurrence: None)
  Receive Date: 20060714
  Receipt Date: 20060405
  Transmission Date: 20061208
  Serious: No
  Sender: FDA-Public Use
  Company Number: 2006SP001576

PATIENT
  Age: 32 Year
  Sex: Male
  Weight: 105.2345 kg

DRUGS (3)
  1. LUNESTA [Suspect]
     Indication: INSOMNIA
     Dosage: 3 MG;PRN;ORAL
     Route: 048
     Dates: start: 20060101, end: 20060201
  2. XANAX [Concomitant]
  3. HYDROCODONE BITARTRATE [Concomitant]

REACTIONS (2)
  - AMNESIA [None]
  - PARASOMNIA [None]
